FAERS Safety Report 7553448-0 (Version None)
Quarter: 2011Q2

REPORT INFORMATION
  Report Type: 
  Country: None (occurrence: None)
  Receive Date: 20110609
  Receipt Date: 20110527
  Transmission Date: 20111010
  Serious: Yes (Other)
  Sender: FDA-Public Use
  Company Number: GER/UKI/11/0018566

PATIENT
  Age: 15 Year
  Sex: Female

DRUGS (3)
  1. KEPPRA [Suspect]
     Indication: MYOCLONIC EPILEPSY
     Dosage: 1500 MG, 2 IN 1 D, ORAL
     Route: 048
  2. EPILIM (VALPROATE SODIUMA) [Concomitant]
  3. LAMOTRIGINE [Suspect]
     Indication: IDIOPATHIC GENERALISED EPILEPSY
     Dosage: 200 MG, 2 IN 1 D, ORAL
     Route: 048
     Dates: start: 20080523, end: 20100602

REACTIONS (5)
  - GRAND MAL CONVULSION [None]
  - THERMAL BURN [None]
  - CONDITION AGGRAVATED [None]
  - AGGRESSION [None]
  - MOOD ALTERED [None]
